FAERS Safety Report 20461126 (Version 12)
Quarter: 2025Q2

REPORT INFORMATION
  Report Type: Report from Study
  Country: US (occurrence: US)
  Receive Date: 20220211
  Receipt Date: 20250630
  Transmission Date: 20250716
  Serious: Yes (Hospitalization, Other)
  Sender: ESTEVE
  Company Number: US-HRARD-2021001098

PATIENT
  Age: 62 Year
  Sex: Male

DRUGS (15)
  1. LYSODREN [Suspect]
     Active Substance: MITOTANE
     Indication: Adrenal gland cancer
     Dates: start: 20210427
  2. LYSODREN [Suspect]
     Active Substance: MITOTANE
     Dates: start: 20210427
  3. FOSAMAX [Concomitant]
     Active Substance: ALENDRONATE SODIUM
  4. LIALDA [Concomitant]
     Active Substance: MESALAMINE
  5. VITAMINS [Concomitant]
     Active Substance: VITAMINS
  6. OMEPRAZOLE [Concomitant]
     Active Substance: OMEPRAZOLE
  7. FLUDROCORTISONE [Concomitant]
     Active Substance: FLUDROCORTISONE
  8. PERCOCET [Concomitant]
     Active Substance: ACETAMINOPHEN\OXYCODONE HYDROCHLORIDE
  9. LEVOTHYROXINE [Concomitant]
     Active Substance: LEVOTHYROXINE
  10. PREDNISONE [Concomitant]
     Active Substance: PREDNISONE
  11. PREDNISONE [Concomitant]
     Active Substance: PREDNISONE
  12. GAVILYTE - C [Concomitant]
     Active Substance: POLYETHYLENE GLYCOL 3350\POTASSIUM CHLORIDE\SODIUM BICARBONATE\SODIUM CHLORIDE\SODIUM SULFATE
  13. LYSODREN [Suspect]
     Active Substance: MITOTANE
  14. LYSODREN [Suspect]
     Active Substance: MITOTANE
  15. LYSODREN [Suspect]
     Active Substance: MITOTANE
     Dates: start: 2021

REACTIONS (4)
  - Urinary tract infection [Recovered/Resolved]
  - Product dose omission issue [Unknown]
  - Diarrhoea [Not Recovered/Not Resolved]
  - Colitis ulcerative [Not Recovered/Not Resolved]

NARRATIVE: CASE EVENT DATE: 20210901
